FAERS Safety Report 18128511 (Version 3)
Quarter: 2020Q4

REPORT INFORMATION
  Report Type: Report from Study
  Country: None (occurrence: US)
  Receive Date: 20200810
  Receipt Date: 20201012
  Transmission Date: 20210113
  Serious: Yes (Hospitalization, Other)
  Sender: FDA-Public Use
  Company Number: US-ABBVIE-20K-163-3517567-00

PATIENT
  Age: 65 Year
  Sex: Female
  Weight: 65.83 kg

DRUGS (19)
  1. MAGNESIUM [Concomitant]
     Active Substance: MAGNESIUM
     Indication: MUSCULOSKELETAL DISORDER PROPHYLAXIS
  2. HUMIRA [Suspect]
     Active Substance: ADALIMUMAB
     Indication: RHEUMATOID ARTHRITIS
     Dosage: CITRATE FREE
     Route: 058
  3. MICARDIS [Concomitant]
     Active Substance: TELMISARTAN
     Indication: RENAL DISORDER
  4. ROSUVASTATIN. [Concomitant]
     Active Substance: ROSUVASTATIN
     Indication: BLOOD CHOLESTEROL INCREASED
  5. BRILINTA [Concomitant]
     Active Substance: TICAGRELOR
     Indication: ANTICOAGULANT THERAPY
  6. CALCIUM CITRATE [Concomitant]
     Active Substance: CALCIUM CITRATE
     Indication: BONE DISORDER
  7. MICARDIS [Concomitant]
     Active Substance: TELMISARTAN
     Indication: HYPERTENSION
  8. MAGNESIUM [Concomitant]
     Active Substance: MAGNESIUM
     Indication: NERVOUS SYSTEM DISORDER PROPHYLAXIS
  9. MAGNESIUM [Concomitant]
     Active Substance: MAGNESIUM
     Indication: CARDIOVASCULAR EVENT PROPHYLAXIS
  10. BUSPIRONE [Concomitant]
     Active Substance: BUSPIRONE HYDROCHLORIDE
     Indication: ANXIETY
  11. L-THYROXINE [Concomitant]
     Active Substance: LEVOTHYROXINE
     Indication: HYPOTHYROIDISM
  12. MICARDIS [Concomitant]
     Active Substance: TELMISARTAN
     Indication: CARDIAC DISORDER
  13. ASPIRIN. [Concomitant]
     Active Substance: ASPIRIN
     Indication: HYPERTENSION
  14. NOVOLOG [Concomitant]
     Active Substance: INSULIN ASPART
     Indication: DIABETES MELLITUS
     Dates: end: 2020
  15. METHOTREXATE. [Concomitant]
     Active Substance: METHOTREXATE
     Indication: RHEUMATOID ARTHRITIS
  16. COENZYME Q10 [Concomitant]
     Active Substance: DIETARY SUPPLEMENT\UBIDECARENONE
     Indication: CARDIOVASCULAR EVENT PROPHYLAXIS
  17. FOLIC ACID. [Concomitant]
     Active Substance: FOLIC ACID
     Indication: PRODUCT USED FOR UNKNOWN INDICATION
  18. SPECTRAVITE [Concomitant]
     Indication: SUPPLEMENTATION THERAPY
  19. THERATEARS [Concomitant]
     Active Substance: CARBOXYMETHYLCELLULOSE SODIUM
     Indication: EYE LUBRICATION THERAPY

REACTIONS (5)
  - Pain in extremity [Recovering/Resolving]
  - Retinal detachment [Recovered/Resolved]
  - Diabetic ketoacidosis [Recovering/Resolving]
  - Coronary arterial stent insertion [Recovered/Resolved]
  - Retinal scar [Not Recovered/Not Resolved]

NARRATIVE: CASE EVENT DATE: 2019
